FAERS Safety Report 13374688 (Version 2)
Quarter: 2017Q2

REPORT INFORMATION
  Report Type: Spontaneous
  Country: FR (occurrence: FR)
  Receive Date: 20170327
  Receipt Date: 20170628
  Transmission Date: 20170830
  Serious: Yes (Life-Threatening)
  Sender: FDA-Public Use
  Company Number: FR-TEVA-751995ROM

PATIENT
  Age: 74 Year
  Sex: Male

DRUGS (7)
  1. DOXORUBICINE TEVA [Suspect]
     Active Substance: DOXORUBICIN
     Indication: LYMPHOMA
     Route: 041
     Dates: start: 20161107, end: 20161128
  2. MABTHERA [Suspect]
     Active Substance: RITUXIMAB
     Indication: LYMPHOMA
     Route: 041
     Dates: start: 20100804, end: 20160218
  3. ELDISINE [Concomitant]
     Active Substance: VINDESINE SULFATE
     Indication: LYMPHOMA
     Route: 042
     Dates: start: 20110107, end: 20110324
  4. VINCRISTINE TEVA [Suspect]
     Active Substance: VINCRISTINE
     Indication: LYMPHOMA
     Route: 042
     Dates: start: 20161012, end: 20161128
  5. GAZYVARO 1000 MG [Suspect]
     Active Substance: OBINUTUZUMAB
     Indication: LYMPHOMA
     Dosage: EXACT FORM: CONCENTRATE FOR SOLUTION FOR INFUSION
     Route: 042
     Dates: start: 20161013, end: 20161128
  6. LEVACT [Suspect]
     Active Substance: BENDAMUSTINE HYDROCHLORIDE
     Indication: LYMPHOMA
     Route: 041
     Dates: start: 20131219, end: 20160219
  7. CYCLOPHOSPHAMIDE SANDOZ [Concomitant]
     Active Substance: CYCLOPHOSPHAMIDE
     Indication: LYMPHOMA
     Route: 041
     Dates: start: 20110107, end: 20110324

REACTIONS (1)
  - Progressive multifocal leukoencephalopathy [Not Recovered/Not Resolved]

NARRATIVE: CASE EVENT DATE: 201702
